FAERS Safety Report 5095762-7 (Version None)
Quarter: 2006Q3

REPORT INFORMATION
  Report Type: 
  Country: None (occurrence: None)
  Receive Date: 20060731
  Receipt Date: 20060501
  Transmission Date: 20061208
  Serious: No
  Sender: FDA-Public Use
  Company Number: 2006PV013063

PATIENT
  Age: 57 Year
  Sex: Female
  Weight: 87.9978 kg

DRUGS (8)
  1. BYETTA [Suspect]
     Indication: DIABETES MELLITUS NON-INSULIN-DEPENDENT
     Dosage: SEE IMAGE
     Route: 058
     Dates: start: 20060301, end: 20060401
  2. BYETTA [Suspect]
     Indication: DIABETES MELLITUS NON-INSULIN-DEPENDENT
     Dosage: SEE IMAGE
     Route: 058
     Dates: start: 20060421, end: 20060430
  3. AVANDAMET [Concomitant]
  4. METFORMIN [Concomitant]
  5. AVANDIA [Concomitant]
  6. TRICOR [Concomitant]
  7. VESICARE [Concomitant]
  8. BLOOD PRESSURE MEDICATION [Concomitant]

REACTIONS (10)
  - ANOREXIA [None]
  - DYSPEPSIA [None]
  - ERUCTATION [None]
  - FATIGUE [None]
  - HICCUPS [None]
  - INJECTION SITE PAIN [None]
  - NAUSEA [None]
  - SOMNOLENCE [None]
  - TREMOR [None]
  - WEIGHT DECREASED [None]
